FAERS Safety Report 12622910 (Version 1)
Quarter: 2016Q3

REPORT INFORMATION
  Report Type: Spontaneous
  Country: US (occurrence: US)
  Receive Date: 20160804
  Receipt Date: 20160804
  Transmission Date: 20161109
  Serious: No
  Sender: FDA-Public Use
  Company Number: GXBR2016US002146

PATIENT
  Sex: Female
  Weight: 51.25 kg

DRUGS (2)
  1. TACROLIMUS. [Suspect]
     Active Substance: TACROLIMUS
     Indication: ECZEMA
     Dosage: 0.1 %, QD, SOMETIMES BID AS NEEDED
     Route: 061
     Dates: start: 201602, end: 20160620
  2. TACROLIMUS. [Suspect]
     Active Substance: TACROLIMUS
     Indication: DRY SKIN

REACTIONS (6)
  - Ocular hyperaemia [Recovering/Resolving]
  - Erythema [Recovered/Resolved]
  - Eye irritation [Recovering/Resolving]
  - Alcohol intolerance [Not Recovered/Not Resolved]
  - Paraesthesia [Recovered/Resolved]
  - Burning sensation [Recovering/Resolving]
